FAERS Safety Report 25013405 (Version 1)
Quarter: 2025Q1

REPORT INFORMATION
  Report Type: Spontaneous
  Country: FR (occurrence: FR)
  Receive Date: 20250226
  Receipt Date: 20250226
  Transmission Date: 20250408
  Serious: Yes (Life-Threatening, Hospitalization)
  Sender: AUROBINDO
  Company Number: FR-AFSSAPS-MP2025000147

PATIENT
  Age: 37 Year
  Sex: Female
  Weight: 65 kg

DRUGS (16)
  1. MYCOPHENOLATE MOFETIL [Suspect]
     Active Substance: MYCOPHENOLATE MOFETIL
     Indication: Prophylaxis against transplant rejection
     Route: 048
     Dates: start: 20240606
  2. THYMOGLOBULIN [Suspect]
     Active Substance: LAPINE T-LYMPHOCYTE IMMUNE GLOBULIN
     Indication: Prophylaxis against transplant rejection
     Route: 042
     Dates: start: 20240607, end: 20240608
  3. THYMOGLOBULIN [Suspect]
     Active Substance: LAPINE T-LYMPHOCYTE IMMUNE GLOBULIN
     Route: 042
     Dates: start: 20240613, end: 20240617
  4. ENVARSUS XR [Suspect]
     Active Substance: TACROLIMUS
     Indication: Prophylaxis against transplant rejection
     Route: 048
     Dates: start: 20240606
  5. METHYLPREDNISOLONE SODIUM SUCCINATE [Suspect]
     Active Substance: METHYLPREDNISOLONE SODIUM SUCCINATE
     Indication: Prophylaxis against transplant rejection
     Dosage: 20 MILLIGRAM, ONCE A DAY
     Route: 048
     Dates: start: 20240608, end: 20240706
  6. METHYLPREDNISOLONE SODIUM SUCCINATE [Suspect]
     Active Substance: METHYLPREDNISOLONE SODIUM SUCCINATE
     Dosage: 15 MILLIGRAM, ONCE A DAY
     Route: 048
     Dates: start: 20240707, end: 20240813
  7. METHYLPREDNISOLONE SODIUM SUCCINATE [Suspect]
     Active Substance: METHYLPREDNISOLONE SODIUM SUCCINATE
     Dosage: 10 MILLIGRAM, ONCE A DAY
     Route: 048
     Dates: start: 20240813, end: 20241008
  8. METHYLPREDNISOLONE SODIUM SUCCINATE [Suspect]
     Active Substance: METHYLPREDNISOLONE SODIUM SUCCINATE
     Dosage: 5 MILLIGRAM, ONCE A DAY
     Route: 048
     Dates: start: 20241009
  9. PLAQUENIL [Concomitant]
     Active Substance: HYDROXYCHLOROQUINE SULFATE
     Indication: Systemic lupus erythematosus
     Dosage: 800 MILLIGRAM, ONCE A DAY
     Route: 048
     Dates: start: 20130408, end: 20130408
  10. PLAQUENIL [Concomitant]
     Active Substance: HYDROXYCHLOROQUINE SULFATE
     Dosage: 400 MILLIGRAM, ONCE A DAY
     Route: 048
     Dates: start: 20130409, end: 20241008
  11. PLAQUENIL [Concomitant]
     Active Substance: HYDROXYCHLOROQUINE SULFATE
     Dosage: 200 MILLIGRAM, ONCE A DAY
     Route: 048
     Dates: start: 20241008, end: 20241008
  12. PLAQUENIL [Concomitant]
     Active Substance: HYDROXYCHLOROQUINE SULFATE
     Dosage: 400 MILLIGRAM, ONCE A DAY
     Route: 048
     Dates: start: 20241009
  13. RAMIPRIL [Concomitant]
     Active Substance: RAMIPRIL
     Indication: Hypertension
     Dosage: 1.25 MILLIGRAM, ONCE A DAY
     Route: 048
  14. PRAVASTATIN SODIUM [Concomitant]
     Active Substance: PRAVASTATIN SODIUM
     Indication: Hypercholesterolaemia
     Dosage: 20 MILLIGRAM, ONCE A DAY
     Route: 048
  15. ATENOLOL [Concomitant]
     Active Substance: ATENOLOL
     Indication: Hypertension
     Dosage: 50 MILLIGRAM, ONCE A DAY
     Route: 048
  16. AMLODIPINE [Concomitant]
     Active Substance: AMLODIPINE BESYLATE
     Indication: Hypertension
     Dosage: 5 MILLIGRAM, TWO TIMES A DAY
     Route: 048

REACTIONS (1)
  - Coronary artery disease [Not Recovered/Not Resolved]

NARRATIVE: CASE EVENT DATE: 20240609
